FAERS Safety Report 4620815-4 (Version None)
Quarter: 2005Q1

REPORT INFORMATION
  Report Type: 
  Country: None (occurrence: None)
  Receive Date: 20050325
  Receipt Date: 20050314
  Transmission Date: 20050727
  Serious: Yes (Hospitalization)
  Sender: FDA-Public Use
  Company Number: US-2005-002172

PATIENT
  Age: 79 Year
  Sex: Male
  Weight: 81.9 kg

DRUGS (12)
  1. FLUDARA [Suspect]
     Indication: B-CELL SMALL LYMPHOCYTIC LYMPHOMA
     Dosage: 25 MG/M2, CYCLE X 5D, INTRAVENOUS
     Route: 042
     Dates: start: 20050227, end: 20050211
  2. SULFAMETHOXAZOLE + TRIMETHOPRIM [Concomitant]
  3. FAMCICLOVIR (FAMCICLOVIR) [Concomitant]
  4. GEMFIBROZIL [Concomitant]
  5. METOPROLOL TARTRATE [Concomitant]
  6. NICOTINIC ACID [Concomitant]
  7. PROCHLORPERAZINE MALEATE (PROCHLORPERAZINE MALEATE) [Concomitant]
  8. TERAZOSIN (TERAZOSIN) [Concomitant]
  9. TRAMADOL HCL [Concomitant]
  10. TYLENOL (CAPLET) [Concomitant]
  11. TRAVOPROST (TRAVOPROST) [Concomitant]
  12. VALDECOXIB [Concomitant]

REACTIONS (36)
  - ANAL FISTULA [None]
  - BACTERAEMIA [None]
  - BASOPHIL PERCENTAGE DECREASED [None]
  - CATHETER RELATED COMPLICATION [None]
  - CONDITION AGGRAVATED [None]
  - DECUBITUS ULCER [None]
  - DIARRHOEA [None]
  - FEBRILE NEUTROPENIA [None]
  - HYPERNATRAEMIA [None]
  - HYPOTENSION [None]
  - HYPOXIA [None]
  - KLEBSIELLA SEPSIS [None]
  - LUNG INFILTRATION [None]
  - LYMPHOCYTE MORPHOLOGY ABNORMAL [None]
  - LYMPHOCYTE PERCENTAGE INCREASED [None]
  - METABOLIC ACIDOSIS [None]
  - MONOCYTE PERCENTAGE DECREASED [None]
  - NORMOCHROMIC NORMOCYTIC ANAEMIA [None]
  - OEDEMA PERIPHERAL [None]
  - PATHOGEN RESISTANCE [None]
  - PLEURAL EFFUSION [None]
  - PNEUMONIA KLEBSIELLA [None]
  - RECTAL ABSCESS [None]
  - RENAL FAILURE ACUTE [None]
  - RESPIRATORY ALKALOSIS [None]
  - RESPIRATORY FAILURE [None]
  - SCROTAL OEDEMA [None]
  - SEPSIS [None]
  - SKIN CANCER [None]
  - SUPRAVENTRICULAR TACHYCARDIA [None]
  - TACHYPNOEA [None]
  - THERAPY NON-RESPONDER [None]
  - THROMBOCYTOPENIA [None]
  - TUMOUR LYSIS SYNDROME [None]
  - URINARY TRACT INFECTION PSEUDOMONAL [None]
  - VENTRICULAR EXTRASYSTOLES [None]
